FAERS Safety Report 9064976 (Version 2)
Quarter: 2013Q1

REPORT INFORMATION
  Report Type: Spontaneous
  Country: US (occurrence: US)
  Receive Date: 20130128
  Receipt Date: 20130327
  Transmission Date: 20140127
  Serious: Yes (Other)
  Sender: FDA-Public Use
  Company Number: US-RB-048909-13

PATIENT
  Age: 34 Year
  Sex: Male

DRUGS (1)
  1. DELSYM [Suspect]
     Indication: COUGH
     Dosage: 1 DOSE AT 10:30 AM
     Route: 048
     Dates: start: 20130112

REACTIONS (8)
  - Hallucination [Recovered/Resolved]
  - Dysuria [Recovered/Resolved]
  - Muscle spasms [Recovered/Resolved]
  - Hyperhidrosis [Recovered/Resolved]
  - Photophobia [Recovered/Resolved]
  - Blood pressure increased [Recovered/Resolved]
  - Dyspnoea [Recovered/Resolved]
  - Drug ineffective [Recovered/Resolved]
